FAERS Safety Report 11231179 (Version 1)
Quarter: 2015Q3

REPORT INFORMATION
  Report Type: Spontaneous
  Country: GB (occurrence: GB)
  Receive Date: 20150701
  Receipt Date: 20150701
  Transmission Date: 20151125
  Serious: Yes (Other)
  Sender: FDA-Public Use
  Company Number: GB-TEVA-573691ACC

PATIENT
  Age: 74 Year
  Sex: Male
  Weight: 89 kg

DRUGS (10)
  1. BETAMETHASONE VALERATE. [Concomitant]
     Active Substance: BETAMETHASONE VALERATE
     Indication: ECZEMA
     Dosage: APPLY TWICE DAILY AS NEEDED
     Route: 061
     Dates: start: 20150409, end: 20150507
  2. AMOXICILLIN. [Concomitant]
     Active Substance: AMOXICILLIN
     Indication: INFECTION
     Dosage: 3 DOSAGE FORMS DAILY;
     Route: 048
     Dates: start: 20140821
  3. RANITIDINE [Concomitant]
     Active Substance: RANITIDINE\RANITIDINE HYDROCHLORIDE
     Dosage: 1 TWICE DAILY OR AS DIRECTED
     Route: 048
     Dates: start: 20140821
  4. CLOPIDOGREL [Concomitant]
     Active Substance: CLOPIDOGREL BISULFATE
     Indication: ANTIPLATELET THERAPY
     Dosage: 1 DOSAGE FORMS DAILY;
     Route: 048
     Dates: start: 20150415
  5. RAMIPRIL. [Concomitant]
     Active Substance: RAMIPRIL
     Dosage: 1 DOSAGE FORMS DAILY; EVERY MORNING
     Route: 048
     Dates: start: 20140821
  6. AMLODIPINE [Concomitant]
     Active Substance: AMLODIPINE BESYLATE
     Indication: HYPERTENSION
     Dosage: 1 DOSAGE FORMS DAILY;
     Route: 048
     Dates: start: 20140821
  7. ATORVASTATIN [Concomitant]
     Active Substance: ATORVASTATIN
     Indication: HYPERCHOLESTEROLAEMIA
     Dosage: 1 DOSAGE FORMS DAILY;
     Route: 048
     Dates: start: 20150415
  8. BUDESONIDE. [Concomitant]
     Active Substance: BUDESONIDE
     Dosage: 1 OR 2 PUFFS
     Route: 055
     Dates: start: 20140821
  9. DIAZEPAM. [Suspect]
     Active Substance: DIAZEPAM
     Indication: SEDATION
     Dates: start: 20150611
  10. INDAPAMIDE. [Concomitant]
     Active Substance: INDAPAMIDE
     Dosage: PRESCRIBING 2.5MG TABLETS IS MORE COST-EFFECTIVE
     Route: 048
     Dates: start: 20150415

REACTIONS (3)
  - Somnolence [Recovered/Resolved]
  - Malaise [Recovered/Resolved]
  - Sedation [Unknown]

NARRATIVE: CASE EVENT DATE: 20150611
